FAERS Safety Report 23576658 (Version 1)
Quarter: 2024Q1

REPORT INFORMATION
  Report Type: Report from Study
  Country: AR (occurrence: AR)
  Receive Date: 20240228
  Receipt Date: 20240228
  Transmission Date: 20240409
  Serious: Yes (Life-Threatening, Hospitalization, Disabling, Other)
  Sender: FDA-Public Use
  Company Number: AR-002147023-NVSC2021AR278575

PATIENT
  Age: 57 Year
  Sex: Male
  Weight: 53 kg

DRUGS (2)
  1. ENALAPRIL [Suspect]
     Active Substance: ENALAPRIL
     Indication: Chagas^ cardiomyopathy
     Dosage: 2.5 UNK
     Route: 048
     Dates: start: 20210909
  2. ENALAPRIL [Suspect]
     Active Substance: ENALAPRIL
     Dosage: 2.5 UNK
     Route: 048
     Dates: start: 20211111

REACTIONS (4)
  - Cardiac failure [Recovered/Resolved]
  - Cardiac failure [Not Recovered/Not Resolved]
  - Cardiac failure acute [Recovered/Resolved]
  - Cardiac failure acute [Not Recovered/Not Resolved]

NARRATIVE: CASE EVENT DATE: 20211130
